FAERS Safety Report 21973709 (Version 1)
Quarter: 2023Q1

REPORT INFORMATION
  Report Type: Spontaneous
  Country: CN (occurrence: CN)
  Receive Date: 20230209
  Receipt Date: 20230209
  Transmission Date: 20230418
  Serious: Yes (Other)
  Sender: FDA-Public Use
  Company Number: CN-009507513-2302CHN002503

PATIENT
  Age: 90 Year
  Sex: Male

DRUGS (2)
  1. INVANZ [Suspect]
     Active Substance: ERTAPENEM SODIUM
     Indication: Anti-infective therapy
     Dosage: 1G QD
     Route: 041
     Dates: start: 20230102, end: 20230105
  2. SODIUM CHLORIDE [Concomitant]
     Active Substance: SODIUM CHLORIDE
     Indication: Vehicle solution use
     Dosage: 60ML QD
     Route: 041
     Dates: start: 20230102, end: 20230105

REACTIONS (2)
  - Epilepsy [Recovered/Resolved]
  - Depressed mood [Unknown]

NARRATIVE: CASE EVENT DATE: 20230105
